FAERS Safety Report 4647163-0 (Version None)
Quarter: 2005Q2

REPORT INFORMATION
  Report Type: 
  Country: None (occurrence: None)
  Receive Date: 20050426
  Receipt Date: 20050426
  Transmission Date: 20051028
  Serious: Yes (Life-Threatening)
  Sender: FDA-Public Use
  Company Number: None

PATIENT
  Age: 78 Year
  Sex: Female
  Weight: 108.8633 kg

DRUGS (2)
  1. CELEBREX [Suspect]
  2. VIOXX [Suspect]

REACTIONS (2)
  - GENERALISED OEDEMA [None]
  - VAGINAL HAEMORRHAGE [None]
